FAERS Safety Report 8649426 (Version 3)
Quarter: 2012Q4

REPORT INFORMATION
  Report Type: 
  Country: US (occurrence: US)
  Receive Date: 20120705
  Receipt Date: 20120928
  Transmission Date: 20130627
  Serious: No
  Sender: FDA-Public Use
  Company Number: US-JNJFOC-20120700586

PATIENT
  Age: 16 None
  Sex: Male
  Weight: 99.79 kg

DRUGS (3)
  1. INVEGA SUSTENNA [Suspect]
     Indication: AUTISM
     Route: 030
     Dates: start: 201202
  2. DEPAKOTE [Concomitant]
     Indication: DRUG THERAPY
     Route: 048
     Dates: start: 2001
  3. CLONIDINE [Concomitant]
     Indication: SLEEP DISORDER THERAPY
     Route: 048
     Dates: start: 2001

REACTIONS (4)
  - Off label use [Not Recovered/Not Resolved]
  - Gait disturbance [Not Recovered/Not Resolved]
  - Incorrect route of drug administration [Recovered/Resolved]
  - Injection site swelling [Not Recovered/Not Resolved]
